FAERS Safety Report 14681555 (Version 1)
Quarter: 2018Q1

REPORT INFORMATION
  Report Type: Spontaneous
  Country: US (occurrence: US)
  Receive Date: 20180326
  Receipt Date: 20180326
  Transmission Date: 20180509
  Serious: No
  Sender: FDA-Public Use
  Company Number: US-KASTLE THERAPEUTICS, LLC-2017KAS000029

PATIENT
  Age: 52 Year
  Sex: Male

DRUGS (3)
  1. KYNAMRO [Suspect]
     Active Substance: MIPOMERSEN SODIUM
     Indication: TYPE IIA HYPERLIPIDAEMIA
     Dosage: EVERY MONDAY
     Route: 058
     Dates: start: 20170501
  2. KYNAMRO [Suspect]
     Active Substance: MIPOMERSEN SODIUM
     Dosage: EVERY MONDAY
     Route: 058
     Dates: start: 20170731
  3. KYNAMRO [Suspect]
     Active Substance: MIPOMERSEN SODIUM
     Indication: TYPE IIA HYPERLIPIDAEMIA
     Route: 058
     Dates: start: 20170425, end: 201801

REACTIONS (10)
  - Treatment noncompliance [Recovered/Resolved]
  - Injection site rash [Recovered/Resolved]
  - Injection site swelling [Recovered/Resolved]
  - Arthralgia [Unknown]
  - Injection site discolouration [Unknown]
  - Pain [Unknown]
  - Injection site warmth [Recovered/Resolved]
  - Injection site pain [Unknown]
  - Injection site erythema [Recovered/Resolved]
  - Drug ineffective [Unknown]

NARRATIVE: CASE EVENT DATE: 201705
